FAERS Safety Report 6135488-1 (Version None)
Quarter: 2009Q1

REPORT INFORMATION
  Report Type: 
  Country: None (occurrence: None)
  Receive Date: 20090327
  Receipt Date: 20090320
  Transmission Date: 20090719
  Serious: Yes (Hospitalization)
  Sender: FDA-Public Use
  Company Number: A0775508A

PATIENT
  Age: 64 Year
  Sex: Male
  Weight: 153.6 kg

DRUGS (3)
  1. AVANDIA [Suspect]
     Indication: DIABETES MELLITUS
     Dosage: 4MG TWICE PER DAY
     Route: 048
     Dates: end: 20070601
  2. AVANDAMET [Suspect]
     Route: 048
  3. METFORMIN [Concomitant]

REACTIONS (1)
  - MYOCARDIAL INFARCTION [None]
